FAERS Safety Report 10103515 (Version 1)
Quarter: 2014Q2

REPORT INFORMATION
  Report Type: Spontaneous
  Country: GB (occurrence: GB)
  Receive Date: 20140424
  Receipt Date: 20140424
  Transmission Date: 20141212
  Serious: Yes (Other)
  Sender: FDA-Public Use
  Company Number: GB-PFIZER INC-2014111665

PATIENT
  Age: 65 Year
  Sex: Female
  Weight: 89.9 kg

DRUGS (9)
  1. RAMIPRIL [Suspect]
     Dosage: UNK
     Route: 065
     Dates: start: 20140310
  2. AQUEOUS CREAM [Concomitant]
     Dosage: UNK
     Dates: start: 20131220, end: 20140117
  3. CLENIL MODULITE [Concomitant]
     Dosage: UNK
     Dates: start: 20131220, end: 20140407
  4. FELODIPINE [Concomitant]
     Dosage: UNK
     Dates: start: 20131030, end: 20140407
  5. IBUPROFEN [Concomitant]
     Dosage: UNK
     Dates: start: 20131220, end: 20140117
  6. METFORMIN [Concomitant]
     Dosage: UNK
     Dates: start: 20131220, end: 20140407
  7. OMEPRAZOLE [Concomitant]
     Dosage: UNK
     Dates: start: 20131220, end: 20140117
  8. TOLTERODINE TARTRATE [Concomitant]
     Dosage: UNK
     Dates: start: 20131220, end: 20140117
  9. VENTOLIN [Concomitant]
     Dosage: UNK
     Dates: start: 20131220, end: 20140407

REACTIONS (2)
  - Dyspnoea [Recovered/Resolved]
  - Wheezing [Unknown]
